FAERS Safety Report 8421310-7 (Version None)
Quarter: 2012Q2

REPORT INFORMATION
  Report Type: 
  Country: None (occurrence: None)
  Receive Date: 20120608
  Receipt Date: 20120605
  Transmission Date: 20120825
  Serious: No
  Sender: FDA-Public Use
  Company Number: US-TEVA-334022USA

PATIENT
  Sex: Female

DRUGS (3)
  1. COPAXONE [Suspect]
     Indication: MULTIPLE SCLEROSIS
     Dosage: 20 MILLIGRAM;
     Route: 058
  2. METHOTREXATE [Interacting]
  3. PLAQUENIL [Concomitant]

REACTIONS (2)
  - DRUG INTERACTION [None]
  - PLATELET COUNT DECREASED [None]
